FAERS Safety Report 22306889 (Version 1)
Quarter: 2023Q2

REPORT INFORMATION
  Report Type: Spontaneous
  Country: US (occurrence: US)
  Receive Date: 20230511
  Receipt Date: 20230511
  Transmission Date: 20230721
  Serious: No
  Sender: FDA-Public Use
  Company Number: US-BIOVITRUM-2023-US-010468

PATIENT
  Age: 71 Year
  Sex: Female

DRUGS (1)
  1. KINERET [Suspect]
     Active Substance: ANAKINRA
     Indication: Rheumatoid arthritis
     Dosage: ONCE DAILY, START DATE 14-APR-2023 APPROXIMATELY
     Route: 058
     Dates: start: 20230414

REACTIONS (1)
  - Infection [Unknown]
